FAERS Safety Report 16766649 (Version 1)
Quarter: 2019Q3

REPORT INFORMATION
  Report Type: Spontaneous
  Country: GB (occurrence: GB)
  Receive Date: 20190903
  Receipt Date: 20190903
  Transmission Date: 20191005
  Serious: Yes (Hospitalization)
  Sender: FDA-Public Use
  Company Number: GB-TEVA-2019-GB-1100476

PATIENT
  Age: 81 Year
  Sex: Female

DRUGS (1)
  1. CO-CARELDOPA [Suspect]
     Active Substance: CARBIDOPA\LEVODOPA
     Indication: PARKINSONISM
     Dosage: 12.5/ 50 MG
     Route: 048
     Dates: start: 20190601, end: 20190603

REACTIONS (1)
  - Neutropenia [Not Recovered/Not Resolved]
